FAERS Safety Report 8523491 (Version 3)
Quarter: 2012Q4

REPORT INFORMATION
  Report Type: 
  Country: JP (occurrence: JP)
  Receive Date: 20120420
  Receipt Date: 20120905
  Transmission Date: 20130627
  Serious: Yes (Life-Threatening, Hospitalization, Other)
  Sender: FDA-Public Use
  Company Number: JP-EISAI INC-E7389-02304-SPO-JP

PATIENT
  Age: 77 Year
  Sex: Female
  Weight: 39 kg

DRUGS (8)
  1. HALAVEN [Suspect]
     Indication: BREAST CANCER RECURRENT
     Route: 041
     Dates: start: 20120127, end: 20120224
  2. METHYCOBAL [Concomitant]
     Indication: NUMBNESS
     Route: 048
     Dates: start: 20120127
  3. PL [Concomitant]
     Indication: COLD
     Route: 048
     Dates: start: 20120127
  4. ASTOMIN [Concomitant]
     Indication: COUGH
     Route: 048
     Dates: start: 20120203
  5. NICHICODE [Concomitant]
     Indication: COUGH
     Route: 048
     Dates: start: 20120217
  6. FLOMOX [Concomitant]
     Indication: INFLAMMATION
  7. TRANSAMIN [Concomitant]
     Indication: UPPER RESPIRATORY TRACT INFLAMMATION
     Route: 048
     Dates: start: 20120217
  8. MUCOSTA [Concomitant]
     Indication: UPPER RESPIRATORY TRACT INFLAMMATION
     Route: 048
     Dates: start: 20120217

REACTIONS (2)
  - Interstitial lung disease [Not Recovered/Not Resolved]
  - Bronchiectasis [None]
